FAERS Safety Report 4698611-1 (Version None)
Quarter: 2005Q2

REPORT INFORMATION
  Report Type: 
  Country: None (occurrence: None)
  Receive Date: 20050623
  Receipt Date: 20050616
  Transmission Date: 20051028
  Serious: Yes (Life-Threatening, Hospitalization)
  Sender: FDA-Public Use
  Company Number: FR-ABBOTT-05P-056-0303455-00

PATIENT
  Age: 35 Year
  Sex: Female

DRUGS (10)
  1. DEPAKOTE [Suspect]
     Indication: SUICIDE ATTEMPT
     Dosage: 5000 MG ONCE
     Route: 048
     Dates: start: 20050519, end: 20050519
  2. DEPAKOTE [Suspect]
     Indication: DRUG USE FOR UNKNOWN INDICATION
  3. TRANXENE [Suspect]
     Indication: SUICIDE ATTEMPT
     Dosage: 650 MG ONCE
     Dates: start: 20050519, end: 20050519
  4. TRANXENE [Suspect]
     Indication: DRUG USE FOR UNKNOWN INDICATION
  5. MEPRONIZINE [Suspect]
     Indication: SUICIDE ATTEMPT
     Dosage: 4100 MG ONCE
     Route: 048
     Dates: start: 20050519, end: 20050519
  6. MEPRONIZINE [Suspect]
     Indication: DRUG USE FOR UNKNOWN INDICATION
  7. HEPARIN-FRACTION, SODIUM SALT [Suspect]
     Indication: SUICIDE ATTEMPT
     Dosage: 54000 IU INJECTION ONCE
     Route: 058
     Dates: start: 20050519, end: 20050519
  8. HEPARIN-FRACTION, SODIUM SALT [Suspect]
     Indication: THROMBOSIS PROPHYLAXIS
     Route: 058
     Dates: start: 20050417, end: 20050518
  9. TREATMENT FOR HYPOTHYROIDISM NOS [Concomitant]
     Indication: HYPOTHYROIDISM
     Route: 065
  10. TREATMENT FOR HYPOTHYROIDISM NOS [Concomitant]
     Route: 065

REACTIONS (4)
  - COAGULOPATHY [None]
  - MENISCUS OPERATION [None]
  - MULTIPLE DRUG OVERDOSE [None]
  - SUICIDE ATTEMPT [None]
